FAERS Safety Report 9791509 (Version 1)
Quarter: 2014Q1

REPORT INFORMATION
  Report Type: Spontaneous
  Country: JP (occurrence: JP)
  Receive Date: 20140101
  Receipt Date: 20140101
  Transmission Date: 20141002
  Serious: Yes (Other)
  Sender: FDA-Public Use
  Company Number: PHHY2013JP152516

PATIENT
  Sex: Male

DRUGS (4)
  1. PACLITAXEL [Suspect]
     Indication: PROSTATE CANCER
  2. CARBOPLATIN [Suspect]
     Indication: PROSTATE CANCER
  3. DOCETAXEL [Suspect]
     Indication: PROSTATE CANCER
     Dates: start: 201203
  4. PREDNISOLONE [Suspect]
     Indication: PROSTATE CANCER
     Dates: start: 201203

REACTIONS (5)
  - Neuropathy peripheral [Unknown]
  - Platelet count decreased [Unknown]
  - White blood cell count decreased [Unknown]
  - Haemoglobin decreased [Unknown]
  - Metastases to bone [Recovering/Resolving]
